FAERS Safety Report 10141231 (Version 1)
Quarter: 2014Q2

REPORT INFORMATION
  Report Type: Spontaneous
  Country: US (occurrence: US)
  Receive Date: 20140429
  Receipt Date: 20140429
  Transmission Date: 20141212
  Serious: Yes (Other)
  Sender: FDA-Public Use
  Company Number: CHPA2014US005790

PATIENT
  Age: 66 Year
  Sex: Female

DRUGS (5)
  1. VOLTAREN GEL [Suspect]
     Indication: NERVE INJURY
     Dosage: 2 G, TID
     Route: 061
  2. VOLTAREN GEL [Suspect]
     Indication: INTERVERTEBRAL DISC PROTRUSION
  3. VOLTAREN GEL [Suspect]
     Indication: OFF LABEL USE
  4. VOLTAREN GEL [Suspect]
     Indication: JOINT SWELLING
  5. VOLTAREN GEL [Suspect]
     Indication: DRUG ADMINISTERED AT INAPPROPRIATE SITE

REACTIONS (1)
  - Blood glucose increased [Not Recovered/Not Resolved]
